FAERS Safety Report 7965693-0 (Version None)
Quarter: 2011Q4

REPORT INFORMATION
  Report Type: 
  Country: None (occurrence: None)
  Receive Date: 20111208
  Receipt Date: 20111128
  Transmission Date: 20120403
  Serious: No
  Sender: FDA-Public Use
  Company Number: DE-ELI_LILLY_AND_COMPANY-DE201112000048

PATIENT
  Age: 49 Year
  Sex: Male

DRUGS (4)
  1. CIALIS [Suspect]
     Dosage: UNK
     Dates: start: 20111111
  2. NEXIUM [Concomitant]
  3. ATACAND [Concomitant]
     Indication: HYPERTENSION
  4. LERCANIDIPINE [Concomitant]
     Indication: HYPERTENSION

REACTIONS (1)
  - VISUAL IMPAIRMENT [None]
